FAERS Safety Report 14577992 (Version 1)
Quarter: 2018Q1

REPORT INFORMATION
  Report Type: Spontaneous
  Country: US (occurrence: US)
  Receive Date: 20180227
  Receipt Date: 20180227
  Transmission Date: 20180509
  Serious: Yes (Other)
  Sender: FDA-Public Use
  Company Number: PHEH2018US007834

PATIENT

DRUGS (1)
  1. RYDAPT [Suspect]
     Active Substance: MIDOSTAURIN
     Indication: PRODUCT USED FOR UNKNOWN INDICATION
     Dosage: UNK UNK, QD
     Route: 065

REACTIONS (6)
  - Graft versus host disease [Unknown]
  - Gastrointestinal pain [Not Recovered/Not Resolved]
  - Liver disorder [Unknown]
  - Full blood count decreased [Unknown]
  - Rash generalised [Unknown]
  - Hypertension [Unknown]
